FAERS Safety Report 14154508 (Version 1)
Quarter: 2017Q4

REPORT INFORMATION
  Report Type: Spontaneous
  Country: JP (occurrence: JP)
  Receive Date: 20171102
  Receipt Date: 20171102
  Transmission Date: 20180321
  Serious: Yes (Other)
  Sender: FDA-Public Use
  Company Number: JP-TEVA-820274ROM

PATIENT
  Age: 77 Year
  Sex: Male

DRUGS (6)
  1. CETUXIMAB. [Suspect]
     Active Substance: CETUXIMAB
     Indication: METASTATIC SQUAMOUS CELL CARCINOMA
     Dosage: INITIALLY 400 MG/M2; THEN ADMINISTERED 250MG/M2 WEEKLY
     Route: 065
  2. TICLOPIDINE [Concomitant]
     Active Substance: TICLOPIDINE
     Indication: MYOCARDIAL INFARCTION
     Dosage: 100 MILLIGRAM DAILY;
     Route: 065
  3. ASPIRIN. [Concomitant]
     Active Substance: ASPIRIN
     Indication: MYOCARDIAL INFARCTION
     Dosage: 100 MILLIGRAM DAILY;
     Route: 065
  4. CARBOPLATIN. [Suspect]
     Active Substance: CARBOPLATIN
     Indication: METASTATIC SQUAMOUS CELL CARCINOMA
     Dosage: AREA UNDER THE CURVE, 5 MG/ML/MIN; FOR 1 HOUR
     Route: 041
  5. CETUXIMAB. [Suspect]
     Active Substance: CETUXIMAB
     Dosage: 250MG/M2 WEEKLY
     Route: 065
  6. FLUOROURACIL. [Suspect]
     Active Substance: FLUOROURACIL
     Indication: METASTATIC SQUAMOUS CELL CARCINOMA
     Dosage: 1000 MG/M2/DAY FOR FOUR DAYS.
     Route: 065

REACTIONS (2)
  - Cardiac ventricular thrombosis [Recovered/Resolved]
  - Peripheral artery thrombosis [Recovered/Resolved]
